FAERS Safety Report 15552072 (Version 2)
Quarter: 2019Q3

REPORT INFORMATION
  Report Type: Spontaneous
  Country: US (occurrence: US)
  Receive Date: 20181025
  Receipt Date: 20190819
  Transmission Date: 20191004
  Serious: Yes (Hospitalization, Other)
  Sender: FDA-Public Use
  Company Number: US-ASTRAZENECA-2018SF37514

PATIENT
  Age: 24342 Day
  Sex: Male
  Weight: 120.2 kg

DRUGS (14)
  1. ANDRODERM [Concomitant]
     Active Substance: TESTOSTERONE
  2. DOXYCYCLINE. [Concomitant]
     Active Substance: DOXYCYCLINE
  3. TAMSULOSIN [Concomitant]
     Active Substance: TAMSULOSIN
  4. COLCHICINE. [Concomitant]
     Active Substance: COLCHICINE
  5. PREDNISONE. [Concomitant]
     Active Substance: PREDNISONE
  6. RAMIPRIL. [Concomitant]
     Active Substance: RAMIPRIL
  7. COLCRYS [Concomitant]
     Active Substance: COLCHICINE
  8. PROPRANOLOL [Concomitant]
     Active Substance: PROPRANOLOL HYDROCHLORIDE
  9. FINASTERIDE. [Concomitant]
     Active Substance: FINASTERIDE
  10. NEXIUM 24HR [Suspect]
     Active Substance: ESOMEPRAZOLE MAGNESIUM
     Route: 048
     Dates: start: 201201, end: 201703
  11. NEXIUM 24HR [Suspect]
     Active Substance: ESOMEPRAZOLE MAGNESIUM
     Route: 048
     Dates: start: 2012, end: 2017
  12. PRILOSEC OTC [Suspect]
     Active Substance: OMEPRAZOLE MAGNESIUM
     Route: 048
     Dates: start: 2012, end: 2017
  13. ELIQUIS [Concomitant]
     Active Substance: APIXABAN
  14. GABAPENTIN. [Concomitant]
     Active Substance: GABAPENTIN

REACTIONS (2)
  - Renal failure [Unknown]
  - Acute kidney injury [Not Recovered/Not Resolved]

NARRATIVE: CASE EVENT DATE: 20161027
